FAERS Safety Report 4898627-6 (Version None)
Quarter: 2006Q1

REPORT INFORMATION
  Report Type: 
  Country: None (occurrence: None)
  Receive Date: 20060130
  Receipt Date: 20060115
  Transmission Date: 20060701
  Serious: Yes (Other)
  Sender: FDA-Public Use
  Company Number: 2006BH000422

PATIENT
  Age: 46 Year
  Sex: Male
  Weight: 90 kg

DRUGS (15)
  1. EXTRANEAL [Suspect]
     Indication: RENAL FAILURE CHRONIC
     Dosage: 1500 ML; EVERY DAY; IP
     Dates: start: 20051227, end: 20051230
  2. AMOXICILLIN [Concomitant]
  3. VANCOMYCIN [Concomitant]
  4. VANCOMYCIN [Concomitant]
  5. VANCOMYCIN [Concomitant]
  6. VANCOMYCIN [Concomitant]
  7. LEVOFLOXACIN [Concomitant]
  8. SEVELAMER [Concomitant]
  9. CALCITRIOL [Concomitant]
  10. FUROSEMIDE [Concomitant]
  11. IRON [Concomitant]
  12. VITAMIN B-12 [Concomitant]
  13. FOLINA [Concomitant]
  14. TELMISARTAN [Concomitant]
  15. DIANEAL [Concomitant]

REACTIONS (1)
  - TOXIC SKIN ERUPTION [None]
